FAERS Safety Report 4516397-8 (Version None)
Quarter: 2004Q4

REPORT INFORMATION
  Report Type: 
  Country: None (occurrence: None)
  Receive Date: 20041202
  Receipt Date: 20040908
  Transmission Date: 20050328
  Serious: Yes (Hospitalization)
  Sender: FDA-Public Use
  Company Number: 200416774US

PATIENT
  Age: 55 Year
  Sex: Female

DRUGS (3)
  1. KETEK [Suspect]
     Indication: BRONCHITIS
     Dosage: DOSE: 2 TABLETS
     Route: 048
     Dates: start: 20040819, end: 20040824
  2. VASOTEC [Suspect]
     Indication: CONDITION AGGRAVATED
     Dosage: DOSE: UNK
  3. ANTIINFLAMMATORY/ANTIRHEUMATIC PRODUCTS [Suspect]

REACTIONS (3)
  - DEHYDRATION [None]
  - RENAL FAILURE [None]
  - VISION BLURRED [None]
